FAERS Safety Report 5273765-7 (Version None)
Quarter: 2007Q1

REPORT INFORMATION
  Report Type: 
  Country: None (occurrence: None)
  Receive Date: 20070321
  Receipt Date: 20070321
  Transmission Date: 20070707
  Serious: Yes (Other)
  Sender: FDA-Public Use
  Company Number: None

PATIENT
  Sex: Female

DRUGS (1)
  1. ATIVAN [Suspect]
     Indication: PANIC DISORDER
     Dosage: 0.5 MG TID PO
     Route: 048
     Dates: start: 19930101

REACTIONS (2)
  - GENERAL PHYSICAL HEALTH DETERIORATION [None]
  - THERAPEUTIC RESPONSE UNEXPECTED WITH DRUG SUBSTITUTION [None]
